FAERS Safety Report 18721253 (Version 2)
Quarter: 2021Q1

REPORT INFORMATION
  Report Type: Report from Study
  Country: MX (occurrence: MX)
  Receive Date: 20210109
  Receipt Date: 20210122
  Transmission Date: 20210419
  Serious: Yes (Other)
  Sender: FDA-Public Use
  Company Number: NVSC2020MX324676

PATIENT
  Age: 54 Year
  Sex: Female
  Weight: 60 kg

DRUGS (2)
  1. EXFORGE HCT [Suspect]
     Active Substance: AMLODIPINE BESYLATE\HYDROCHLOROTHIAZIDE\VALSARTAN
     Dosage: 1 DF, QD
     Route: 048
  2. EXFORGE HCT [Suspect]
     Active Substance: AMLODIPINE BESYLATE\HYDROCHLOROTHIAZIDE\VALSARTAN
     Indication: HYPERTENSION
     Dosage: 1 DF, BID
     Route: 048
     Dates: start: 2014

REACTIONS (17)
  - Pain [Unknown]
  - Influenza [Unknown]
  - Illness [Unknown]
  - Body temperature increased [Unknown]
  - Off label use [Unknown]
  - Ageusia [Recovering/Resolving]
  - Fatigue [Recovering/Resolving]
  - Headache [Unknown]
  - Bone pain [Recovering/Resolving]
  - Speech disorder [Unknown]
  - Dyspnoea [Unknown]
  - Blood pressure increased [Unknown]
  - Diabetes mellitus [Not Recovered/Not Resolved]
  - COVID-19 [Recovered/Resolved]
  - Anosmia [Recovering/Resolving]
  - Oxygen saturation decreased [Recovering/Resolving]
  - Pulmonary pain [Unknown]

NARRATIVE: CASE EVENT DATE: 20201118
